FAERS Safety Report 10364608 (Version 1)
Quarter: 2014Q3

REPORT INFORMATION
  Report Type: Spontaneous
  Country: US (occurrence: None)
  Receive Date: 20140805
  Receipt Date: 20140805
  Transmission Date: 20150326
  Serious: Yes (Hospitalization)
  Sender: FDA-Public Use
  Company Number: None

PATIENT
  Age: 63 Year
  Sex: Female
  Weight: 87.7 kg

DRUGS (23)
  1. PROMACTA [Concomitant]
     Active Substance: ELTROMBOPAG OLAMINE
  2. IRON [Concomitant]
     Active Substance: IRON
  3. KLOR-CON [Concomitant]
     Active Substance: POTASSIUM CHLORIDE
  4. OXYCODONE [Concomitant]
     Active Substance: OXYCODONE
  5. CAMBIA [Concomitant]
     Active Substance: DICLOFENAC POTASSIUM
  6. TOPAMAX [Concomitant]
     Active Substance: TOPIRAMATE
  7. OMEPRAZOLE. [Concomitant]
     Active Substance: OMEPRAZOLE
  8. PRILOSEC [Concomitant]
     Active Substance: OMEPRAZOLE MAGNESIUM
  9. ALPROZOLAM [Concomitant]
     Active Substance: ALPRAZOLAM
  10. FUROSEMIDE. [Concomitant]
     Active Substance: FUROSEMIDE
  11. ZOFRAN [Concomitant]
     Active Substance: ONDANSETRON HYDROCHLORIDE
  12. MELOXICAM. [Concomitant]
     Active Substance: MELOXICAM
  13. SOFOSBUVIR [Suspect]
     Active Substance: SOFOSBUVIR
     Indication: HEPATITIS C
     Dosage: 400 1XDAILY PO
     Route: 048
     Dates: start: 20140207, end: 20140330
  14. RIBAVIRIN. [Suspect]
     Active Substance: RIBAVIRIN
     Indication: HEPATITIS C
     Dosage: 600 2XDAILY PO
     Dates: start: 20140207, end: 20140330
  15. KENALOG [Concomitant]
     Active Substance: TRIAMCINOLONE ACETONIDE
  16. LASIX [Concomitant]
     Active Substance: FUROSEMIDE
  17. POTASSIUM [Concomitant]
     Active Substance: POTASSIUM
  18. ASPIRIN. [Concomitant]
     Active Substance: ASPIRIN
  19. VICODIN [Concomitant]
     Active Substance: ACETAMINOPHEN\HYDROCODONE BITARTRATE
  20. LIDOCAINE. [Concomitant]
     Active Substance: LIDOCAINE
  21. LEXAPRO [Concomitant]
     Active Substance: ESCITALOPRAM OXALATE
  22. EXTRA STRENGTH TYELNOL [Concomitant]
  23. FOLIC ACID. [Concomitant]
     Active Substance: FOLIC ACID

REACTIONS (7)
  - Fall [None]
  - Febrile neutropenia [None]
  - Escherichia test positive [None]
  - Pancytopenia [None]
  - Pubis fracture [None]
  - Syncope [None]
  - Loss of consciousness [None]

NARRATIVE: CASE EVENT DATE: 20140330
